FAERS Safety Report 16839916 (Version 1)
Quarter: 2019Q3

REPORT INFORMATION
  Report Type: Spontaneous
  Country: US (occurrence: US)
  Receive Date: 20190731
  Receipt Date: 20190731
  Transmission Date: 20191005
  Serious: No
  Sender: FDA-Public Use
  Company Number: None

PATIENT
  Age: 67 Year
  Sex: Male
  Weight: 79 kg

DRUGS (1)
  1. TIZANIDINE. [Suspect]
     Active Substance: TIZANIDINE
     Indication: HEMIPARESIS
     Route: 048
     Dates: start: 20190220, end: 20190603

REACTIONS (2)
  - Hypotension [None]
  - Asthenia [None]

NARRATIVE: CASE EVENT DATE: 20190528
